FAERS Safety Report 14021035 (Version 1)
Quarter: 2017Q3

REPORT INFORMATION
  Report Type: Spontaneous
  Country: US (occurrence: US)
  Receive Date: 20170928
  Receipt Date: 20170928
  Transmission Date: 20171128
  Serious: No
  Sender: FDA-Public Use
  Company Number: US-ROCHE-GNE293245

PATIENT
  Sex: Female
  Weight: 80.59 kg

DRUGS (2)
  1. LUCENTIS [Suspect]
     Active Substance: RANIBIZUMAB
     Indication: NEOVASCULAR AGE-RELATED MACULAR DEGENERATION
     Dosage: UNK
     Route: 050
     Dates: start: 20090409
  2. LASER EYE TREATMENT [Concomitant]
     Indication: NEOVASCULAR AGE-RELATED MACULAR DEGENERATION
     Dosage: UNK
     Route: 065
     Dates: start: 200904

REACTIONS (4)
  - Visual impairment [Unknown]
  - Dizziness [None]
  - Eye pain [None]
  - Visual impairment [None]
